FAERS Safety Report 25577289 (Version 4)
Quarter: 2025Q4

REPORT INFORMATION
  Report Type: Spontaneous
  Country: JP (occurrence: JP)
  Receive Date: 20250718
  Receipt Date: 20251211
  Transmission Date: 20260117
  Serious: Yes (Hospitalization, Other)
  Sender: MERCK SHARP & DOHME LLC
  Company Number: JP-009507513-2296554

PATIENT
  Sex: Female

DRUGS (2)
  1. KEYTRUDA [Suspect]
     Active Substance: PEMBROLIZUMAB
     Route: 041
     Dates: start: 2025, end: 2025
  2. KEYTRUDA [Suspect]
     Active Substance: PEMBROLIZUMAB
     Route: 065
     Dates: start: 2025

REACTIONS (3)
  - Immune-mediated enterocolitis [Unknown]
  - Immune-mediated gastritis [Unknown]
  - Large intestine perforation [Unknown]

NARRATIVE: CASE EVENT DATE: 20250101
